FAERS Safety Report 8450076-X (Version None)
Quarter: 2012Q2

REPORT INFORMATION
  Report Type: 
  Country: None (occurrence: None)
  Receive Date: 20120620
  Receipt Date: 20120612
  Transmission Date: 20120825
  Serious: Yes (Other)
  Sender: FDA-Public Use
  Company Number: US-JNJFOC-20120607843

PATIENT
  Age: 84 Year
  Sex: Male

DRUGS (8)
  1. MOTRIN IB [Suspect]
     Indication: MYOCARDIAL INFARCTION
     Route: 048
  2. ATORVASTATIN CALCIUM [Concomitant]
     Indication: BLOOD CHOLESTEROL INCREASED
     Route: 065
  3. MOTRIN IB [Suspect]
     Route: 048
  4. LASIX [Concomitant]
     Indication: MYOCARDIAL INFARCTION
     Route: 065
  5. ASPIRIN [Concomitant]
     Indication: CARDIAC DISORDER
     Route: 065
  6. COREG [Concomitant]
     Indication: MYOCARDIAL INFARCTION
     Route: 065
  7. WARFARIN SODIUM [Concomitant]
     Indication: CEREBROVASCULAR ACCIDENT
     Route: 065
  8. WARFARIN SODIUM [Concomitant]
     Indication: MYOCARDIAL INFARCTION
     Route: 065

REACTIONS (1)
  - RENAL FAILURE ACUTE [None]
